FAERS Safety Report 12111223 (Version 1)
Quarter: 2016Q1

REPORT INFORMATION
  Report Type: Spontaneous
  Country: US (occurrence: US)
  Receive Date: 20160224
  Receipt Date: 20160224
  Transmission Date: 20160526
  Serious: No
  Sender: FDA-Public Use
  Company Number: US-JAZZ-2015-US-008427

PATIENT
  Age: 53 Year
  Sex: Female

DRUGS (17)
  1. PRIALT [Suspect]
     Active Substance: ZICONOTIDE ACETATE
     Indication: NEURALGIA
     Dosage: 0.229 ?G, QH
     Route: 037
     Dates: end: 20150615
  2. FENTANYL. [Concomitant]
     Active Substance: FENTANYL
  3. PRIALT [Suspect]
     Active Substance: ZICONOTIDE ACETATE
     Indication: PAIN
     Dosage: UNK ?G, QH
     Route: 037
     Dates: start: 20150422
  4. PRIALT [Suspect]
     Active Substance: ZICONOTIDE ACETATE
     Indication: SPINAL OSTEOARTHRITIS
     Dosage: 0.146 ?G, QH
     Route: 037
  5. PRIALT [Suspect]
     Active Substance: ZICONOTIDE ACETATE
     Dosage: 0.312 ?G, QH
     Route: 037
     Dates: start: 20150629, end: 20150702
  6. BACLOFEN. [Concomitant]
     Active Substance: BACLOFEN
  7. SOMA [Concomitant]
     Active Substance: CARISOPRODOL
  8. RESTORIL [Concomitant]
     Active Substance: TEMAZEPAM
  9. PRIALT [Suspect]
     Active Substance: ZICONOTIDE ACETATE
     Dosage: 0.292 ?G, QH
     Route: 037
     Dates: start: 20150622, end: 20150629
  10. NEURONTIN [Concomitant]
     Active Substance: GABAPENTIN
  11. PRIALT [Suspect]
     Active Substance: ZICONOTIDE ACETATE
     Dosage: 0.271 ?G, QH
     Route: 037
     Dates: start: 20150615, end: 20150622
  12. PRIALT [Suspect]
     Active Substance: ZICONOTIDE ACETATE
     Dosage: 0.229 ?G, QH
     Route: 037
     Dates: start: 20150702
  13. CELEBREX [Concomitant]
     Active Substance: CELECOXIB
  14. ELAVIL [Concomitant]
     Active Substance: AMITRIPTYLINE HYDROCHLORIDE
  15. GLUCOPHAGE [Concomitant]
     Active Substance: METFORMIN HYDROCHLORIDE
  16. CODEINE [Concomitant]
     Active Substance: CODEINE
  17. LO LOESTRIN FE [Concomitant]
     Active Substance: ETHINYL ESTRADIOL\NORETHINDRONE ACETATE

REACTIONS (4)
  - Unevaluable event [Not Recovered/Not Resolved]
  - Aphasia [Not Recovered/Not Resolved]
  - Heart rate increased [Not Recovered/Not Resolved]
  - Blood pressure increased [Recovered/Resolved]

NARRATIVE: CASE EVENT DATE: 20150604
